FAERS Safety Report 7781196-0 (Version None)
Quarter: 2011Q3

REPORT INFORMATION
  Report Type: 
  Country: None (occurrence: None)
  Receive Date: 20110927
  Receipt Date: 20110915
  Transmission Date: 20111222
  Serious: Yes (Other)
  Sender: FDA-Public Use
  Company Number: PHHY2011BR82437

PATIENT
  Sex: Female

DRUGS (4)
  1. METFORMIN HCL [Concomitant]
     Indication: DIABETES MELLITUS
     Dosage: 750 MG, UNK
  2. LEVOTHYROXINE SODIUM [Concomitant]
     Indication: HYPOTHYROIDISM
  3. SERTRALINE HYDROCHLORIDE [Concomitant]
     Indication: WEIGHT DECREASED
  4. DIOVAN HCT [Suspect]
     Indication: HYPERTENSION
     Dosage: 320 MG VALSARTAN/12.5 MG HYDROCHLOROTHIAZIDE, PER DAY
     Route: 048

REACTIONS (3)
  - PAIN IN EXTREMITY [None]
  - VARICOPHLEBITIS [None]
  - PHLEBITIS [None]
